FAERS Safety Report 14495163 (Version 5)
Quarter: 2018Q2

REPORT INFORMATION
  Report Type: Report from Study
  Country: US (occurrence: US)
  Receive Date: 20180206
  Receipt Date: 20180508
  Transmission Date: 20180711
  Serious: Yes (Hospitalization)
  Sender: FDA-Public Use
  Company Number: US-ACTELION-A-NJ2018-166451

PATIENT
  Age: 37 Year
  Sex: Female
  Weight: 57.6 kg

DRUGS (1)
  1. VELETRI [Suspect]
     Active Substance: EPOPROSTENOL
     Indication: PULMONARY ARTERIAL HYPERTENSION
     Dosage: 20 NG/KG, PER MIN
     Route: 042

REACTIONS (12)
  - Laboratory test abnormal [Unknown]
  - Blood creatinine increased [Unknown]
  - Vomiting [Unknown]
  - Headache [Unknown]
  - Renal impairment [Unknown]
  - Catheter site pain [Unknown]
  - Dehydration [Unknown]
  - Back pain [Recovering/Resolving]
  - Pain [Unknown]
  - Hypersomnia [Unknown]
  - Nausea [Recovering/Resolving]
  - Pain in jaw [Unknown]
